FAERS Safety Report 25978379 (Version 1)
Quarter: 2025Q4

REPORT INFORMATION
  Report Type: Spontaneous
  Country: US (occurrence: US)
  Receive Date: 20251030
  Receipt Date: 20251030
  Transmission Date: 20260118
  Serious: No
  Sender: LEO PHARM
  Company Number: US-LEO Pharma-383767

PATIENT
  Age: 22 Year
  Sex: Female

DRUGS (1)
  1. ADBRY [Suspect]
     Active Substance: TRALOKINUMAB-LDRM
     Indication: Eczema
     Dosage: TREATMENT ONGOING??4 -150MG SUBCUTANEOUS SYRINGE INJECTIONS ON DAY ONE (10/2025), THEN 2 - 150 MG SU
     Route: 058
     Dates: start: 202510

REACTIONS (4)
  - Loss of personal independence in daily activities [Unknown]
  - Insomnia [Unknown]
  - Eczema [Unknown]
  - Mood altered [Unknown]
